FAERS Safety Report 7545878-8 (Version None)
Quarter: 2011Q2

REPORT INFORMATION
  Report Type: 
  Country: None (occurrence: None)
  Receive Date: 20110613
  Receipt Date: 20110613
  Transmission Date: 20111010
  Serious: No
  Sender: FDA-Public Use
  Company Number: None

PATIENT
  Sex: Male
  Weight: 81.7 kg

DRUGS (1)
  1. HEPARIN SODIUM [Suspect]
     Indication: AORTIC ANEURYSM
     Dosage: IV BOLUS
     Route: 040
     Dates: start: 20110607, end: 20110607

REACTIONS (1)
  - PRODUCT MEASURED POTENCY ISSUE [None]
